FAERS Safety Report 6390276-6 (Version None)
Quarter: 2009Q4

REPORT INFORMATION
  Report Type: 
  Country: None (occurrence: None)
  Receive Date: 20091003
  Receipt Date: 20090929
  Transmission Date: 20100525
  Serious: Yes (Hospitalization)
  Sender: FDA-Public Use
  Company Number: SPV1-2009-01915

PATIENT
  Age: 73 Year
  Sex: Female
  Weight: 78.9 kg

DRUGS (4)
  1. FOSRENOL [Suspect]
     Indication: HYPERPHOSPHATAEMIA
     Dosage: 1000 MG, 1/2 TABLET THREE TIMES DAILY, ORAL
     Route: 048
     Dates: start: 20090601
  2. CLINIDINE HYDROCHLORIDE (CLONIDINE HYDROCHLORIDE) [Concomitant]
  3. AMARYL [Concomitant]
  4. ;IPITOR (ATORVASTATIN CALCIUM) [Concomitant]

REACTIONS (1)
  - PANCREATITIS [None]
